FAERS Safety Report 8723190 (Version 3)
Quarter: 2014Q2

REPORT INFORMATION
  Report Type: Spontaneous
  Country: US (occurrence: US)
  Receive Date: 20120814
  Receipt Date: 20140404
  Transmission Date: 20141212
  Serious: Yes (Death, Hospitalization)
  Sender: FDA-Public Use
  Company Number: US-B.I. PHARMACEUTICALS,INC./RIDGEFIELD-2012-BP-18785BP

PATIENT
  Age: 65 Year
  Sex: Male
  Weight: 109.77 kg

DRUGS (9)
  1. PRADAXA [Suspect]
     Indication: ATRIAL FIBRILLATION
     Dosage: 300 MG
     Route: 065
     Dates: start: 20110119, end: 20110429
  2. SYNTHROID [Concomitant]
     Dosage: 100 MCG
     Route: 065
  3. LANOXIN [Concomitant]
     Dosage: 0.25 MG
     Route: 065
  4. BENICAR [Concomitant]
     Dosage: 20 MG
     Route: 065
  5. LANTUS [Concomitant]
     Route: 065
  6. METFORMIN [Concomitant]
     Route: 065
  7. MULTIVITAMINS [Concomitant]
     Route: 065
  8. VIGAMOX [Concomitant]
     Route: 065
  9. ECONOPRED [Concomitant]
     Route: 065

REACTIONS (6)
  - Embolic stroke [Fatal]
  - Cerebral haemorrhage [Fatal]
  - Coagulopathy [Fatal]
  - Anaemia [Unknown]
  - Acute respiratory failure [Unknown]
  - Haematuria [Unknown]
